FAERS Safety Report 18550678 (Version 1)
Quarter: 2020Q4

REPORT INFORMATION
  Report Type: Spontaneous
  Country: QA (occurrence: QA)
  Receive Date: 20201126
  Receipt Date: 20201126
  Transmission Date: 20210114
  Serious: Yes (Life-Threatening, Hospitalization, Other)
  Sender: FDA-Public Use
  Company Number: QA-GLAXOSMITHKLINE-QA2020GSK231722

PATIENT
  Age: 62 Year
  Sex: Female

DRUGS (10)
  1. SALBUTAMOL SULPHATE [Suspect]
     Active Substance: ALBUTEROL SULFATE
     Indication: HYPERKALAEMIA
     Dosage: UNK
  2. CALCIUM POLYSTYRENE SULFONATE [Suspect]
     Active Substance: CALCIUM POLYSTYRENE SULFONATE
     Indication: HYPERKALAEMIA
     Dosage: 50 G
     Route: 048
  3. SPIRONOLACTONE. [Suspect]
     Active Substance: SPIRONOLACTONE
     Indication: HYPERALDOSTERONISM
     Dosage: 500 MG, QD
  4. CALCIUM GLUCONATE. [Suspect]
     Active Substance: CALCIUM GLUCONATE
     Indication: HYPERKALAEMIA
     Dosage: 1 UNK, SLOWLY OVER 10 MINUTES
     Route: 042
  5. POTASSIUM CHLORIDE. [Suspect]
     Active Substance: POTASSIUM CHLORIDE
     Indication: HYPERALDOSTERONISM
     Dosage: 600 MG, BID
  6. POTASSIUM CHLORIDE. [Suspect]
     Active Substance: POTASSIUM CHLORIDE
     Dosage: 800 MG, BID
  7. DEXTROSE 50% [Suspect]
     Active Substance: DEXTROSE
     Indication: HYPERKALAEMIA
     Dosage: 50 ML
     Route: 042
  8. PERINDOPRIL [Suspect]
     Active Substance: PERINDOPRIL
     Indication: HYPERTENSION
     Dosage: 10 MG, QD
  9. METFORMIN [Concomitant]
     Active Substance: METFORMIN HYDROCHLORIDE
     Indication: TYPE 2 DIABETES MELLITUS
     Dosage: 500 MG, BID
  10. SODIUM BICARBONATE. [Suspect]
     Active Substance: SODIUM BICARBONATE
     Indication: HYPERKALAEMIA
     Dosage: 100 MG
     Route: 042

REACTIONS (9)
  - Hyperkalaemia [Recovered/Resolved]
  - Fatigue [Recovered/Resolved]
  - Blood creatinine increased [Recovered/Resolved]
  - Chronic kidney disease [Unknown]
  - Blood urea increased [Recovered/Resolved]
  - Drug ineffective [Unknown]
  - Tachycardia [Recovered/Resolved]
  - Asthenia [Recovered/Resolved]
  - Metabolic acidosis [Recovered/Resolved]
